FAERS Safety Report 10392561 (Version 4)
Quarter: 2015Q2

REPORT INFORMATION
  Report Type: Spontaneous
  Country: US (occurrence: US)
  Receive Date: 20140819
  Receipt Date: 20150414
  Transmission Date: 20150821
  Serious: Yes (Other)
  Sender: FDA-Public Use
  Company Number: US-PFIZER INC-2014228833

PATIENT
  Age: 69 Year
  Sex: Female
  Weight: 65.31 kg

DRUGS (56)
  1. COUMADIN [Suspect]
     Active Substance: WARFARIN SODIUM
     Dosage: 5 MG, 1X/DAY
     Dates: start: 20130316
  2. DONEPEZIL HYDROCHLORIDE. [Concomitant]
     Active Substance: DONEPEZIL HYDROCHLORIDE
     Indication: DEMENTIA
     Dosage: 5 MG, 1 TABLET DAILY AFTER MEAL
  3. VITAMIN C [Concomitant]
     Active Substance: ASCORBIC ACID
     Dosage: 500 MG, 1X/DAY
  4. PILOCARPINE HYDROCHLORIDE. [Concomitant]
     Active Substance: PILOCARPINE HYDROCHLORIDE
     Indication: DRY MOUTH
     Dosage: 5 MG, 3X/DAY
  5. FIBRE, DIETARY [Concomitant]
     Active Substance: PSYLLIUM HUSK
     Dosage: TAKE 2 TSP. DAILY
  6. OMEGA-3 FISH OIL +VITAMIN D [Concomitant]
     Dosage: FISH OIL 1200 MG WITH OMEGA-3 PLUS VIT D3 2000 TU
  7. PILOCARPINE [Concomitant]
     Active Substance: PILOCARPINE
     Indication: DRY MOUTH
     Dosage: 5 MG, 3X/DAY
  8. NICOTROL [Concomitant]
     Active Substance: NICOTINE
     Indication: SMOKING CESSATION THERAPY
     Dosage: UNKNOWN DOSE FROM 10MG CARTRIDGE WHICH HAS 4MG NICOTINE
  9. DONEPEZIL HYDROCHLORIDE. [Concomitant]
     Active Substance: DONEPEZIL HYDROCHLORIDE
     Dosage: 5 MG, 2X/DAY
  10. VITAMIN C [Concomitant]
     Active Substance: ASCORBIC ACID
     Indication: BLOOD POTASSIUM DECREASED
     Dosage: 1000 MG, 1X DAILY
  11. VITAMIN B COMPLEX WITH C [Concomitant]
     Active Substance: ASCORBIC ACID\CALCIUM PANTOTHENATE\CYANOCOBALAMIN\NIACINAMIDE\PYRIDOXINE HYDROCHLORIDE\RIBOFLAVIN\THIAMINE MONONITRATE
     Indication: BLOOD POTASSIUM DECREASED
     Dosage: 1 DF, 1X/DAY
  12. CALCIUM WITH VITAMIN D [Concomitant]
     Active Substance: CALCIUM\VITAMIN D
     Dosage: 600 MG, 1X/DAY
  13. LYRICA [Suspect]
     Active Substance: PREGABALIN
     Indication: NEUROPATHY PERIPHERAL
     Dosage: 150 MG, 3X/DAY
     Route: 048
     Dates: start: 2012
  14. LYRICA [Suspect]
     Active Substance: PREGABALIN
     Dosage: 300 MG, 2X/DAY
     Route: 048
     Dates: start: 2014
  15. COUMADIN [Suspect]
     Active Substance: WARFARIN SODIUM
     Dosage: 6MG ONCE DAILY FIRST DAY OF THE WEEK
  16. RESTASIS [Concomitant]
     Active Substance: CYCLOSPORINE
     Indication: DRY EYE
     Dosage: 0.05% EACH EYE EMULSION 1 DROP IN EACH EYE TWICE A DAY
     Route: 047
  17. SIMVASTATIN. [Concomitant]
     Active Substance: SIMVASTATIN
     Indication: BLOOD CHOLESTEROL INCREASED
     Dosage: 10 MG, 1 TABLET BEDTIME
  18. CLONIDINE. [Concomitant]
     Active Substance: CLONIDINE
     Dosage: UNK
  19. COUMADIN [Suspect]
     Active Substance: WARFARIN SODIUM
     Indication: ANTICOAGULANT THERAPY
     Dosage: UNK
     Dates: start: 1979
  20. COUMADIN [Suspect]
     Active Substance: WARFARIN SODIUM
     Dosage: 6 MG - MONDAY, WED, SAT, SUNDAY. 5 MG TUESDAY AND FRIDAY
  21. FERROUS SULFATE [Concomitant]
     Active Substance: FERROUS SULFATE\FERROUS SULFATE, DRIED
     Dosage: 325 MG, 1X/DAY
  22. ALPRAZOLAM. [Concomitant]
     Active Substance: ALPRAZOLAM
     Indication: ANXIETY
     Dosage: 2 MG, UNK
  23. ALPRAZOLAM. [Concomitant]
     Active Substance: ALPRAZOLAM
     Dosage: 4 MG, DAILY(1 MG MORNING-1 MG IN AFTERNOON-2 MG AT NIGHT)
  24. CALCIUM [Concomitant]
     Active Substance: CALCIUM
     Indication: OSTEOPOROSIS
     Dosage: 600 MG, 2XDAILY
  25. VITAMIN B12 [Concomitant]
     Active Substance: CYANOCOBALAMIN
     Indication: BLOOD POTASSIUM DECREASED
     Dosage: 1000 ?G, 1X/DAY
  26. IRON [Concomitant]
     Active Substance: IRON
     Indication: ANAEMIA
     Dosage: 65 MG, 1X/DAY
  27. ASPIRIN. [Concomitant]
     Active Substance: ASPIRIN
     Dosage: 81 MG
  28. LYRICA [Suspect]
     Active Substance: PREGABALIN
     Dosage: 300 MG, 3X/DAY
     Route: 048
     Dates: start: 2014
  29. COUMADIN [Suspect]
     Active Substance: WARFARIN SODIUM
     Dosage: 7MG ONCE DAILY FOR SECOND DAY OF THE WEEK
  30. COUMADIN [Suspect]
     Active Substance: WARFARIN SODIUM
     Dosage: 6MG THRICE DAILY ON THIRD DAY OF THE WEEK
  31. PREMARIN [Concomitant]
     Active Substance: ESTROGENS, CONJUGATED
     Indication: HOT FLUSH
     Dosage: 0.3 MG, DAILY
  32. HYDROCODONE [Concomitant]
     Active Substance: HYDROCODONE
     Dosage: 5 MG, UNK
  33. FERROUS SULFATE [Concomitant]
     Active Substance: FERROUS SULFATE\FERROUS SULFATE, DRIED
     Indication: ANAEMIA
     Dosage: 325 MG, 3X/DAY
  34. PROAIR HFA [Concomitant]
     Active Substance: ALBUTEROL SULFATE
     Indication: PULMONARY FIBROSIS
  35. PROAIR HFA [Concomitant]
     Active Substance: ALBUTEROL SULFATE
     Indication: CHRONIC OBSTRUCTIVE PULMONARY DISEASE
  36. VITA-MINI OMEGA 3 [Concomitant]
     Indication: CARDIAC DISORDER
     Dosage: UNK, 1X DAILY
  37. VITAMIN B COMPLEX [Concomitant]
     Active Substance: CYANOCOBALAMIN\DEXPANTHENOL\NIACINAMIDE\PYRIDOXINE HYDROCHLORIDE\RIBOFLAVIN 5^-PHOSPHATE SODIUM\THIAMINE HYDROCHLORIDE\VITAMIN B COMPLEX
     Dosage: UNK, 1X/DAY
  38. CHANTIX [Concomitant]
     Active Substance: VARENICLINE TARTRATE
  39. BABY ASPIRIN [Concomitant]
     Active Substance: ASPIRIN
     Dosage: 1 DF, DAILY
  40. PROZAC [Concomitant]
     Active Substance: FLUOXETINE HYDROCHLORIDE
     Indication: ANXIETY
  41. POTASSIUM [Concomitant]
     Active Substance: POTASSIUM
     Indication: BLOOD POTASSIUM DECREASED
     Dosage: 595 MG, 1 TABLET DAILY
  42. VITAMIN D3 [Concomitant]
     Active Substance: CHOLECALCIFEROL
     Dosage: 1000 IU, 2X/DAY
  43. B6 [Concomitant]
     Active Substance: PYRIDOXINE HYDROCHLORIDE
     Indication: BLOOD POTASSIUM DECREASED
     Dosage: 100 MG, 1X DAILY
  44. BIOTENE MOUTHWASH [Concomitant]
     Indication: DRY MOUTH
     Dosage: 2 USE IT 2X DAILY
  45. COUMADIN [Suspect]
     Active Substance: WARFARIN SODIUM
     Dosage: 1 MG, 1X/DAY
  46. NEXIUM [Concomitant]
     Active Substance: ESOMEPRAZOLE MAGNESIUM
     Indication: GASTROOESOPHAGEAL REFLUX DISEASE
     Dosage: 40 MG, DAILY
  47. PROZAC [Concomitant]
     Active Substance: FLUOXETINE HYDROCHLORIDE
     Indication: DEPRESSION
     Dosage: 20 MG, 1 CAPSULE MORNING
  48. ENDOCET [Concomitant]
     Active Substance: ACETAMINOPHEN\OXYCODONE HYDROCHLORIDE
     Indication: NEUROPATHY PERIPHERAL
     Dosage: 10/325 MG, 3 TIMES DAILY
  49. OXYCODONE [Concomitant]
     Active Substance: OXYCODONE
     Indication: NEUROPATHY PERIPHERAL
     Dosage: 325 MG, 4X/DAY
  50. NORVASC [Concomitant]
     Active Substance: AMLODIPINE BESYLATE
     Indication: BLOOD PRESSURE ABNORMAL
     Dosage: 5 MG, 1X/DAY
  51. NITROGLYCERINE [Concomitant]
     Active Substance: NITROGLYCERIN
     Dosage: UNK
  52. ALPRAZOLAM. [Concomitant]
     Active Substance: ALPRAZOLAM
     Indication: DEPRESSION
     Dosage: 3 MG (3 TABLETS) DAILY
  53. DIAZEPAM. [Concomitant]
     Active Substance: DIAZEPAM
     Dosage: 2 MG, UNK
  54. PROAIR HFA [Concomitant]
     Active Substance: ALBUTEROL SULFATE
     Indication: EMPHYSEMA
     Dosage: 90 MCG,  2 PUFFS TWICE DAILY AS NEEDED
     Route: 055
  55. VITAMIN D3 [Concomitant]
     Active Substance: CHOLECALCIFEROL
     Indication: OSTEOPOROSIS
     Dosage: 2000 IU, 1X DAILY
  56. VITAMIN D [Concomitant]
     Active Substance: CHOLECALCIFEROL
     Dosage: UNK, 1X/DAY

REACTIONS (6)
  - Gait disturbance [Not Recovered/Not Resolved]
  - Abdominal discomfort [Unknown]
  - Thrombosis [Unknown]
  - Blood viscosity increased [Not Recovered/Not Resolved]
  - Hernia [Not Recovered/Not Resolved]
  - Neuropathy peripheral [Not Recovered/Not Resolved]

NARRATIVE: CASE EVENT DATE: 2012
